FAERS Safety Report 5815604-9 (Version None)
Quarter: 2008Q3

REPORT INFORMATION
  Report Type: 
  Country: None (occurrence: None)
  Receive Date: 20080716
  Receipt Date: 20080703
  Transmission Date: 20090109
  Serious: Yes (Death)
  Sender: FDA-Public Use
  Company Number: OPER20080112

PATIENT
  Age: 48 Year
  Sex: Female

DRUGS (2)
  1. OPANA ER [Suspect]
     Indication: PAIN
     Dates: start: 20080201, end: 20080101
  2. OXYCONTIN [Suspect]
     Indication: PAIN
     Dates: start: 20080101, end: 20080101

REACTIONS (1)
  - INADEQUATE ANALGESIA [None]
